FAERS Safety Report 11101713 (Version 12)
Quarter: 2016Q2

REPORT INFORMATION
  Report Type: Report from Study
  Country: LB (occurrence: LB)
  Receive Date: 20150508
  Receipt Date: 20160407
  Transmission Date: 20160815
  Serious: Yes (Other)
  Sender: FDA-Public Use
  Company Number: PHHY2014LB086032

PATIENT
  Age: 45 Year
  Sex: Female

DRUGS (3)
  1. ADVIL [Concomitant]
     Active Substance: IBUPROFEN
     Indication: PRODUCT USED FOR UNKNOWN INDICATION
     Dosage: UNK, PRN (SOS)
     Route: 048
  2. TASIGNA [Suspect]
     Active Substance: NILOTINIB
     Indication: PRODUCT USED FOR UNKNOWN INDICATION
     Dosage: 800 MG, Q12H
     Route: 048
     Dates: start: 201407
  3. ATARAX [Concomitant]
     Active Substance: HYDROXYZINE\HYDROXYZINE HYDROCHLORIDE
     Indication: PRODUCT USED FOR UNKNOWN INDICATION
     Dosage: UNK, PRN (SOS)
     Route: 048
     Dates: start: 201407

REACTIONS (37)
  - Secretion discharge [Unknown]
  - Constipation [Recovering/Resolving]
  - Oedema peripheral [Recovering/Resolving]
  - Memory impairment [Unknown]
  - Thyroiditis [Recovering/Resolving]
  - Constipation [Recovered/Resolved]
  - Influenza [Not Recovered/Not Resolved]
  - Hyperglycaemia [Recovering/Resolving]
  - Abdominal pain [Recovering/Resolving]
  - Diarrhoea [Recovering/Resolving]
  - Dermatitis allergic [Not Recovered/Not Resolved]
  - Arthralgia [Not Recovered/Not Resolved]
  - Back pain [Not Recovered/Not Resolved]
  - Weight decreased [Not Recovered/Not Resolved]
  - Alopecia [Not Recovered/Not Resolved]
  - Bone pain [Recovering/Resolving]
  - Abdominal pain upper [Not Recovered/Not Resolved]
  - Erythema [Unknown]
  - Leukocytosis [Not Recovered/Not Resolved]
  - Haematochezia [Unknown]
  - Insomnia [Unknown]
  - Skin disorder [Recovering/Resolving]
  - Rash [Not Recovered/Not Resolved]
  - Hypersensitivity [Not Recovered/Not Resolved]
  - Vision blurred [Not Recovered/Not Resolved]
  - Eye allergy [Recovering/Resolving]
  - Peripheral swelling [Not Recovered/Not Resolved]
  - Fatigue [Not Recovered/Not Resolved]
  - Allergic cough [Unknown]
  - Helminthic infection [Recovering/Resolving]
  - Haemorrhoids [Recovering/Resolving]
  - Dry skin [Not Recovered/Not Resolved]
  - Dizziness [Not Recovered/Not Resolved]
  - Eye pruritus [Unknown]
  - Amnesia [Not Recovered/Not Resolved]
  - Musculoskeletal chest pain [Unknown]
  - Sinusitis [Recovering/Resolving]

NARRATIVE: CASE EVENT DATE: 201407
